FAERS Safety Report 5668869-0 (Version None)
Quarter: 2008Q1

REPORT INFORMATION
  Report Type: 
  Country: None (occurrence: None)
  Receive Date: 20080317
  Receipt Date: 20080312
  Transmission Date: 20080703
  Serious: Yes (Death, Other)
  Sender: FDA-Public Use
  Company Number: US-BRISTOL-MYERS SQUIBB COMPANY-14073431

PATIENT
  Age: 31 Year
  Sex: Female

DRUGS (4)
  1. ABILIFY [Suspect]
     Indication: DELUSIONAL DISORDER, PERSECUTORY TYPE
  2. CLOZAPINE [Suspect]
     Indication: HALLUCINATION
     Dates: start: 20080101
  3. AMBIEN [Concomitant]
  4. ALPRAZOLAM [Concomitant]

REACTIONS (2)
  - DEATH [None]
  - WHITE BLOOD CELL COUNT DECREASED [None]
